FAERS Safety Report 24825881 (Version 1)
Quarter: 2025Q1

REPORT INFORMATION
  Report Type: Spontaneous
  Country: US (occurrence: None)
  Receive Date: 20250109
  Receipt Date: 20250109
  Transmission Date: 20250408
  Serious: Yes (Hospitalization)
  Sender: FDA-CTU
  Company Number: None

PATIENT
  Sex: Female

DRUGS (4)
  1. MAYZENT [Suspect]
     Active Substance: SIPONIMOD
     Indication: Multiple sclerosis
     Dosage: FREQUENCY : DAILY;?
     Route: 048
     Dates: start: 20191016
  2. CALCIUM TAB 500-D [Concomitant]
  3. MULTIVITAMIN TAB ADLT 50+ [Concomitant]
  4. VIT D3 HP [Concomitant]

REACTIONS (3)
  - Mobility decreased [None]
  - Fall [None]
  - Skin abrasion [None]
